FAERS Safety Report 23343448 (Version 8)
Quarter: 2025Q4

REPORT INFORMATION
  Report Type: Report from Study
  Country: US (occurrence: US)
  Receive Date: 20231227
  Receipt Date: 20251231
  Transmission Date: 20260118
  Serious: No
  Sender: PFIZER
  Company Number: US-PFIZER INC-PV202300180248

PATIENT
  Age: 86 Year
  Sex: Male
  Weight: 78.458 kg

DRUGS (2)
  1. XELJANZ [Suspect]
     Active Substance: TOFACITINIB CITRATE
     Indication: Lymphocytic leukaemia
     Dosage: 5 MG
     Route: 048
     Dates: start: 2023
  2. XELJANZ [Suspect]
     Active Substance: TOFACITINIB CITRATE
     Dosage: 5 MG, TAKE 0.5 TABLETS BY MOUTH IN THE MORNING AND 0.5 TABLETS BEFORE BEDTIME
     Route: 048

REACTIONS (4)
  - Asthenia [Unknown]
  - Illness [Unknown]
  - Off label use [Unknown]
  - Drug ineffective for unapproved indication [Unknown]
